FAERS Safety Report 9949935 (Version 1)
Quarter: 2014Q1

REPORT INFORMATION
  Report Type: Report from Study
  Country: US (occurrence: US)
  Receive Date: 20140304
  Receipt Date: 20140304
  Transmission Date: 20141002
  Serious: Yes (Hospitalization)
  Sender: FDA-Public Use
  Company Number: US-ABBVIE-13P-163-1067840-00

PATIENT
  Sex: Female
  Weight: 73.55 kg

DRUGS (7)
  1. HUMIRA [Suspect]
     Indication: CROHN^S DISEASE
     Dates: start: 2008
  2. ENTECORT [Concomitant]
     Indication: CROHN^S DISEASE
  3. PENTASA [Concomitant]
     Indication: CROHN^S DISEASE
  4. NEXIUM [Concomitant]
     Indication: GASTROOESOPHAGEAL REFLUX DISEASE
  5. ZANTAC [Concomitant]
     Indication: GASTROOESOPHAGEAL REFLUX DISEASE
  6. VITAMIN B12 [Concomitant]
     Indication: VITAMIN SUPPLEMENTATION
  7. IMPLANON [Concomitant]
     Indication: MENSTRUATION IRREGULAR

REACTIONS (2)
  - Pancreatitis [Recovered/Resolved]
  - Pain [Not Recovered/Not Resolved]
